FAERS Safety Report 14660201 (Version 2)
Quarter: 2018Q1

REPORT INFORMATION
  Report Type: Spontaneous
  Country: US (occurrence: US)
  Receive Date: 20180320
  Receipt Date: 20180326
  Transmission Date: 20180509
  Serious: No
  Sender: FDA-Public Use
  Company Number: US-BAYER-2018-053035

PATIENT
  Age: 79 Year
  Sex: Female
  Weight: 50.34 kg

DRUGS (14)
  1. FISH OIL [Concomitant]
     Active Substance: FISH OIL
  2. CLARITIN [Concomitant]
     Active Substance: LORATADINE
  3. MIRALAX [Suspect]
     Active Substance: POLYETHYLENE GLYCOL 3350
     Indication: OESOPHAGOGASTRODUODENOSCOPY
     Dosage: 1 DF, UNK
     Route: 048
     Dates: start: 20180216, end: 20180316
  4. PHILLIPS COLON HEALTH PROBIOTICS WITH METABOLISM SUPPORT [Suspect]
     Active Substance: PROBIOTICS NOS
     Indication: ENDOSCOPY
  5. METOPROLOL. [Concomitant]
     Active Substance: METOPROLOL
  6. PHILLIPS COLON HEALTH PROBIOTICS WITH METABOLISM SUPPORT [Suspect]
     Active Substance: PROBIOTICS NOS
     Indication: GASTROINTESTINAL DISORDER
     Dosage: 1 DF, QD AFTER BREAKFAST
     Route: 048
     Dates: start: 20180216
  7. BAYER LOW DOSE [Suspect]
     Active Substance: ASPIRIN
     Indication: ANTICOAGULANT THERAPY
  8. ATORVASTATIN [Concomitant]
     Active Substance: ATORVASTATIN
  9. HYDROXYUREA. [Concomitant]
     Active Substance: HYDROXYUREA
  10. PREVACID [Concomitant]
     Active Substance: LANSOPRAZOLE
  11. BAYER ASPIRIN [Suspect]
     Active Substance: ASPIRIN
     Indication: PROPHYLAXIS
     Dosage: 1 DF, QD
     Route: 048
  12. CENTRUM SILVER [Concomitant]
     Active Substance: MINERALS\VITAMINS
  13. PHILLIPS COLON HEALTH PROBIOTICS WITH METABOLISM SUPPORT [Suspect]
     Active Substance: PROBIOTICS NOS
     Indication: COLONOSCOPY
  14. CITRACAL PETITES [Concomitant]
     Active Substance: CALCIUM CITRATE

REACTIONS (9)
  - Product use in unapproved indication [None]
  - Product use in unapproved indication [Unknown]
  - Swelling [Recovered/Resolved]
  - Off label use [None]
  - Off label use [Unknown]
  - Flatulence [Unknown]
  - Contusion [Unknown]
  - Product use issue [Unknown]
  - Product use issue [None]

NARRATIVE: CASE EVENT DATE: 20180216
